FAERS Safety Report 14754887 (Version 7)
Quarter: 2018Q4

REPORT INFORMATION
  Report Type: Report from Study
  Country: None (occurrence: US)
  Receive Date: 20180413
  Receipt Date: 20181114
  Transmission Date: 20190204
  Serious: Yes (Hospitalization, Other)
  Sender: FDA-Public Use
  Company Number: US-ABBVIE-18K-163-2295991-00

PATIENT
  Sex: Male

DRUGS (4)
  1. HUMIRA [Suspect]
     Active Substance: ADALIMUMAB
     Route: 058
     Dates: start: 201804, end: 201806
  2. HUMIRA [Suspect]
     Active Substance: ADALIMUMAB
     Indication: ANKYLOSING SPONDYLITIS
     Route: 058
     Dates: start: 20180208, end: 201803
  3. HUMIRA [Suspect]
     Active Substance: ADALIMUMAB
     Route: 058
     Dates: start: 2018, end: 2018
  4. HUMIRA [Suspect]
     Active Substance: ADALIMUMAB
     Route: 058
     Dates: start: 201808

REACTIONS (21)
  - Fatigue [Not Recovered/Not Resolved]
  - Hypoxia [Unknown]
  - Musculoskeletal stiffness [Not Recovered/Not Resolved]
  - Sinus disorder [Unknown]
  - Headache [Not Recovered/Not Resolved]
  - Pyrexia [Recovered/Resolved]
  - Ankylosing spondylitis [Not Recovered/Not Resolved]
  - Loss of consciousness [Unknown]
  - Upper-airway cough syndrome [Unknown]
  - Joint range of motion decreased [Not Recovered/Not Resolved]
  - Rhinorrhoea [Unknown]
  - Nasopharyngitis [Unknown]
  - Arthralgia [Unknown]
  - Pneumonia [Recovered/Resolved]
  - Mobility decreased [Not Recovered/Not Resolved]
  - Increased upper airway secretion [Unknown]
  - Back pain [Not Recovered/Not Resolved]
  - Musculoskeletal pain [Unknown]
  - Sinusitis [Recovering/Resolving]
  - Neck pain [Recovering/Resolving]
  - Arthralgia [Recovering/Resolving]

NARRATIVE: CASE EVENT DATE: 2018
